FAERS Safety Report 19262134 (Version 1)
Quarter: 2021Q2

REPORT INFORMATION
  Report Type: Spontaneous
  Country: US (occurrence: US)
  Receive Date: 20210516
  Receipt Date: 20210516
  Transmission Date: 20210717
  Serious: No
  Sender: FDA-Public Use
  Company Number: US-SA-2021SA160703

PATIENT
  Age: 42 Year
  Sex: Female

DRUGS (11)
  1. CLONIDINE. [Concomitant]
     Active Substance: CLONIDINE
  2. DIVALPROEX [Concomitant]
     Active Substance: DIVALPROEX SODIUM
  3. LORATADINE. [Concomitant]
     Active Substance: LORATADINE
  4. OMEPRAZOLE. [Concomitant]
     Active Substance: OMEPRAZOLE
  5. ADVAIR HFA [Concomitant]
     Active Substance: FLUTICASONE PROPIONATE\SALMETEROL XINAFOATE
  6. DUPIXENT [Suspect]
     Active Substance: DUPILUMAB
     Indication: NASAL POLYPS
     Dosage: 300 MG
     Route: 058
  7. FLUVOXAMINE [Concomitant]
     Active Substance: FLUVOXAMINE
  8. MONTELUKAST [Concomitant]
     Active Substance: MONTELUKAST SODIUM
  9. FLUTICASONE. [Concomitant]
     Active Substance: FLUTICASONE
  10. PROGESTERONE. [Concomitant]
     Active Substance: PROGESTERONE
  11. LAMOTRIGINE. [Concomitant]
     Active Substance: LAMOTRIGINE

REACTIONS (4)
  - Erythema [Unknown]
  - Dry eye [Unknown]
  - Skin ulcer [Unknown]
  - Oropharyngeal pain [Unknown]
